FAERS Safety Report 13496860 (Version 2)
Quarter: 2017Q2

REPORT INFORMATION
  Report Type: Report from Study
  Country: JP (occurrence: JP)
  Receive Date: 20170428
  Receipt Date: 20170518
  Transmission Date: 20170830
  Serious: Yes (Other)
  Sender: FDA-Public Use
  Company Number: PHJP2017JP013421

PATIENT
  Age: 76 Year
  Sex: Female

DRUGS (6)
  1. NEORAL [Concomitant]
     Active Substance: CYCLOSPORINE
     Indication: PUSTULAR PSORIASIS
     Dosage: 75 MG, QD
     Route: 048
     Dates: start: 20140325, end: 20160705
  2. NEORAL [Concomitant]
     Active Substance: CYCLOSPORINE
     Dosage: 50 MG, QD
     Route: 048
     Dates: start: 20160706, end: 20160830
  3. NEORAL [Concomitant]
     Active Substance: CYCLOSPORINE
     Dosage: 25 MG, QD
     Route: 048
     Dates: start: 20160831, end: 20160928
  4. COSENTYX [Suspect]
     Active Substance: SECUKINUMAB
     Indication: PUSTULAR PSORIASIS
     Dosage: 300 MG, QW
     Route: 058
     Dates: start: 20160512, end: 20160607
  5. COSENTYX [Suspect]
     Active Substance: SECUKINUMAB
     Dosage: 300 MG, 4W
     Route: 058
     Dates: start: 20160706
  6. COSENTYX [Suspect]
     Active Substance: SECUKINUMAB
     Dosage: 300 MG, 4W
     Route: 058
     Dates: start: 20170419

REACTIONS (4)
  - Interstitial lung disease [Unknown]
  - Cell marker increased [Unknown]
  - Lung infiltration [Unknown]
  - Computerised tomogram thorax abnormal [Unknown]

NARRATIVE: CASE EVENT DATE: 201703
